FAERS Safety Report 6307739-1 (Version None)
Quarter: 2009Q3

REPORT INFORMATION
  Report Type: 
  Country: None (occurrence: None)
  Receive Date: 20090813
  Receipt Date: 20090805
  Transmission Date: 20100115
  Serious: Yes (Hospitalization)
  Sender: FDA-Public Use
  Company Number: PHHY2009CA29863

PATIENT
  Sex: Female

DRUGS (7)
  1. DIOVAN [Suspect]
     Dosage: 1 TABLET (160 MG) PER DAY
     Route: 048
  2. DIOVAN HCT [Suspect]
     Dosage: 1 TABLET (160/12.5 MG) PER DAY
     Route: 048
  3. DIOVAN HCT [Suspect]
     Dosage: 1 TABLET (160/25 MG) PER DAY IN THE MORNING
     Route: 048
  4. PROSCAR [Concomitant]
     Dosage: 180 UNK, UNK
  5. VERAPAMIL [Concomitant]
  6. GLUCOPHAGE [Concomitant]
  7. FLOMAX [Concomitant]

REACTIONS (6)
  - ABDOMINAL PAIN UPPER [None]
  - CHEST DISCOMFORT [None]
  - DYSPEPSIA [None]
  - MYOCARDIAL INFARCTION [None]
  - NAUSEA [None]
  - STENT PLACEMENT [None]
